FAERS Safety Report 9652831 (Version 1)
Quarter: 2013Q4

REPORT INFORMATION
  Report Type: Spontaneous
  Country: AR (occurrence: AR)
  Receive Date: 20131029
  Receipt Date: 20131029
  Transmission Date: 20140711
  Serious: Yes (Hospitalization)
  Sender: FDA-Public Use
  Company Number: AR-ROXANE LABORATORIES, INC.-2013-RO-01733RO

PATIENT
  Age: 24 Year
  Sex: Male

DRUGS (2)
  1. LORAZEPAM [Suspect]
  2. HALOPERIDOL [Suspect]

REACTIONS (1)
  - Neuroleptic malignant syndrome [Unknown]
